FAERS Safety Report 7903519-1 (Version None)
Quarter: 2011Q4

REPORT INFORMATION
  Report Type: 
  Country: None (occurrence: None)
  Receive Date: 20111109
  Receipt Date: 20111102
  Transmission Date: 20120403
  Serious: Yes (Other)
  Sender: FDA-Public Use
  Company Number: DE-JNJFOC-20111102750

PATIENT
  Age: 71 Year
  Sex: Female
  Weight: 70 kg

DRUGS (5)
  1. METOPROLOL [Concomitant]
     Indication: HYPERTENSION
  2. XARELTO [Suspect]
     Indication: THROMBOSIS PROPHYLAXIS
     Route: 048
     Dates: start: 20110325, end: 20110426
  3. ALENDRONIC ACID [Concomitant]
     Indication: OSTEOPOROSIS
  4. RAMIPRIL [Concomitant]
     Indication: HYPERTENSION
  5. CEFUROXIME [Concomitant]
     Indication: POST PROCEDURAL INFECTION
     Dates: start: 20110325, end: 20110401

REACTIONS (4)
  - DECREASED APPETITE [None]
  - DYSGEUSIA [None]
  - TRANSAMINASES INCREASED [None]
  - NAUSEA [None]
